FAERS Safety Report 8440893-4 (Version None)
Quarter: 2012Q2

REPORT INFORMATION
  Report Type: 
  Country: None (occurrence: None)
  Receive Date: 20120615
  Receipt Date: 20120605
  Transmission Date: 20120825
  Serious: Yes (Hospitalization, Other)
  Sender: FDA-Public Use
  Company Number: PHHY2012BR022107

PATIENT
  Sex: Male

DRUGS (5)
  1. TRIMETAZIDINE [Suspect]
     Indication: CARDIAC DISORDER
     Dosage: 1 DF, UNK
     Route: 048
     Dates: start: 20120201
  2. SIMVASTATIN [Suspect]
     Indication: DIABETES MELLITUS
     Dosage: 2 DF, QD
     Route: 048
  3. METFORMIN HCL [Suspect]
     Route: 048
     Dates: start: 20120301
  4. FORMOTEROL FUMARATE [Suspect]
     Indication: EMPHYSEMA
     Dosage: UNK
     Dates: end: 20120401
  5. ISOSORBIDE MONONITRATE [Suspect]
     Dosage: 2 DF, QD
     Route: 048
     Dates: start: 19930101

REACTIONS (2)
  - PNEUMONIA [None]
  - LUNG INFECTION [None]
